FAERS Safety Report 6536650-6 (Version None)
Quarter: 2010Q1

REPORT INFORMATION
  Report Type: 
  Country: None (occurrence: None)
  Receive Date: 20100113
  Receipt Date: 20100110
  Transmission Date: 20100710
  Serious: Yes (Hospitalization)
  Sender: FDA-Public Use
  Company Number: IE-EISAI INC.-E2090-00927-SPO-IE

PATIENT
  Age: 39 Year
  Sex: Female
  Weight: 75 kg

DRUGS (7)
  1. ZONEGRAN [Interacting]
     Indication: EPILEPSY
     Route: 048
     Dates: start: 20070124
  2. VIMPAT [Suspect]
     Indication: EPILEPSY
     Route: 048
     Dates: start: 20080429
  3. TOPAMAX [Concomitant]
     Indication: EPILEPSY
     Route: 048
  4. RISPERIDONE [Concomitant]
     Route: 048
     Dates: start: 20080708
  5. RISPERIDONE [Concomitant]
     Route: 048
     Dates: start: 20091101
  6. FOLIC ACID [Concomitant]
     Indication: EPILEPSY
  7. TRILEPTAL [Concomitant]
     Indication: EPILEPSY

REACTIONS (2)
  - DRUG INTERACTION [None]
  - PSYCHOTIC DISORDER [None]
